FAERS Safety Report 12989639 (Version 1)
Quarter: 2016Q4

REPORT INFORMATION
  Report Type: Spontaneous
  Country: US (occurrence: US)
  Receive Date: 20161130
  Receipt Date: 20161130
  Transmission Date: 20170207
  Serious: Yes (Hospitalization)
  Sender: FDA-Public Use
  Company Number: None

PATIENT
  Age: 66 Year
  Sex: Male
  Weight: 113.5 kg

DRUGS (2)
  1. VANCOMYCIN [Suspect]
     Active Substance: VANCOMYCIN
     Indication: INFECTION
     Route: 042
     Dates: start: 20161020, end: 20161108
  2. CEFEPIME [Suspect]
     Active Substance: CEFEPIME HYDROCHLORIDE
     Indication: INFECTION
     Route: 042
     Dates: start: 20161023, end: 20161108

REACTIONS (6)
  - Hypersomnia [None]
  - Acute kidney injury [None]
  - Nephropathy toxic [None]
  - Eosinophilia [None]
  - Antibiotic level above therapeutic [None]
  - Renal tubular necrosis [None]

NARRATIVE: CASE EVENT DATE: 20161108
